FAERS Safety Report 4551243-8 (Version None)
Quarter: 2005Q1

REPORT INFORMATION
  Report Type: 
  Country: None (occurrence: None)
  Receive Date: 20050110
  Receipt Date: 20041227
  Transmission Date: 20050727
  Serious: Yes (Hospitalization)
  Sender: FDA-Public Use
  Company Number: 2004AP06469

PATIENT
  Age: 16 Year
  Sex: Female

DRUGS (3)
  1. DIPRIVAN [Suspect]
     Dosage: 120 MG DAILY IV
     Route: 042
     Dates: start: 20041224, end: 20041224
  2. MUSCULAX [Concomitant]
  3. CEFTIZOXIME SODIUM [Concomitant]

REACTIONS (2)
  - ERYTHEMA [None]
  - LARYNGEAL OEDEMA [None]
